FAERS Safety Report 5313623-2 (Version None)
Quarter: 2007Q2

REPORT INFORMATION
  Report Type: 
  Country: None (occurrence: None)
  Receive Date: 20070501
  Receipt Date: 20070425
  Transmission Date: 20071010
  Serious: Yes (Hospitalization)
  Sender: FDA-Public Use
  Company Number: 2007UW08115

PATIENT
  Age: 47 Year
  Sex: Male

DRUGS (18)
  1. SEROQUEL [Suspect]
     Route: 048
     Dates: start: 20061101
  2. CORTELL [Concomitant]
  3. DILTIAZEM [Concomitant]
  4. LEXAPRO [Concomitant]
  5. ACTOS [Concomitant]
  6. ULTRAM [Concomitant]
  7. NEXIUM [Concomitant]
     Route: 048
  8. SINGULAIR [Concomitant]
  9. ANTIVERT [Concomitant]
  10. REGLAN [Concomitant]
  11. LEVOXYL [Concomitant]
  12. SERZONE [Concomitant]
  13. VALIUM [Concomitant]
  14. LANTUS [Concomitant]
  15. ZELNORM [Concomitant]
  16. TESTOSTERONE [Concomitant]
  17. GEODON [Concomitant]
  18. PROZAC [Concomitant]

REACTIONS (2)
  - ROAD TRAFFIC ACCIDENT [None]
  - SOMNOLENCE [None]
